FAERS Safety Report 7419208-6 (Version None)
Quarter: 2011Q2

REPORT INFORMATION
  Report Type: 
  Country: None (occurrence: None)
  Receive Date: 20110415
  Receipt Date: 20110405
  Transmission Date: 20111010
  Serious: Yes (Hospitalization, Other)
  Sender: FDA-Public Use
  Company Number: US-ASTRAZENECA-2010SE55221

PATIENT
  Age: 71 Year
  Sex: Female
  Weight: 91 kg

DRUGS (13)
  1. ASPIRIN [Concomitant]
     Route: 048
  2. INSULIN [Concomitant]
     Dosage: TWO TIMES A DAY
     Route: 058
  3. CRESTOR [Suspect]
     Route: 048
  4. SYNTHROID [Concomitant]
     Route: 048
  5. POTASSIUM CHLORIDE [Concomitant]
     Route: 048
  6. ONGLYZA [Suspect]
     Route: 048
     Dates: end: 20101113
  7. CRESTOR [Suspect]
     Indication: HYPERLIPIDAEMIA
     Dosage: 40 MG UNKNOWN FREQUENCY STARTED PRIOR TO 16-NOV-2004 INTERRUPTED ON 08-NOV-2010
     Route: 048
  8. ONGLYZA [Suspect]
     Indication: TYPE 2 DIABETES MELLITUS
     Route: 048
     Dates: start: 20100630, end: 20100811
  9. OMEPRAZOLE [Concomitant]
     Route: 048
  10. LASIX [Concomitant]
     Indication: SWELLING
     Route: 048
  11. ATENOLOL [Concomitant]
     Route: 048
  12. LANTUS [Concomitant]
     Dosage: 1DF: 30UNITS 100UNITS/ML(3ML), AT BEDTIME.
     Route: 058
  13. NOVOLOG [Concomitant]
     Dosage: FLEXPEN 1DF:10UNITS INSULIN PEN 100UNITS/ML, 1HR BEFORE MEALS THREE TIMES A DAY.
     Route: 058

REACTIONS (7)
  - DIABETIC KETOACIDOSIS [None]
  - URINARY TRACT INFECTION STAPHYLOCOCCAL [None]
  - RHABDOMYOLYSIS [None]
  - RENAL FAILURE ACUTE [None]
  - PANCREATITIS [None]
  - HYPERGLYCAEMIA [None]
  - HYPOPHOSPHATAEMIA [None]
